FAERS Safety Report 8921742 (Version 1)
Quarter: 2012Q4

REPORT INFORMATION
  Report Type: 
  Country: AU (occurrence: AU)
  Receive Date: 20121121
  Receipt Date: 20121121
  Transmission Date: 20130627
  Serious: Yes (Death)
  Sender: FDA-Public Use
  Company Number: AU-COVIDIEN/TYCO HEALTHCARE/MALLINCKRODT-T201203926

PATIENT
  Age: 56 Year
  Sex: Female

DRUGS (3)
  1. EXALGO EXTENDED RELEASE [Suspect]
     Indication: CANCER PAIN
     Dosage: 8 mg, qd
  2. EXALGO EXTENDED RELEASE [Suspect]
     Dosage: 16 mg, qd
  3. ENDONE [Suspect]
     Indication: CANCER PAIN
     Dosage: UNK

REACTIONS (2)
  - Malignant neoplasm progression [Fatal]
  - Breakthrough pain [Unknown]
